FAERS Safety Report 23697030 (Version 1)
Quarter: 2024Q2

REPORT INFORMATION
  Report Type: Spontaneous
  Country: US (occurrence: None)
  Receive Date: 20240401
  Receipt Date: 20240401
  Transmission Date: 20240716
  Serious: No
  Sender: FDA-Public Use
  Company Number: None

PATIENT
  Age: 37 Year
  Sex: Female
  Weight: 94.5 kg

DRUGS (1)
  1. RYBELSUS [Suspect]
     Active Substance: SEMAGLUTIDE
     Indication: Weight control
     Dates: start: 20221207, end: 20230111

REACTIONS (3)
  - Depression [None]
  - Suicidal ideation [None]
  - Bipolar disorder [None]

NARRATIVE: CASE EVENT DATE: 20221210
